FAERS Safety Report 16647288 (Version 2)
Quarter: 2023Q4

REPORT INFORMATION
  Report Type: Spontaneous
  Country: KR (occurrence: KR)
  Receive Date: 20190730
  Receipt Date: 20231207
  Transmission Date: 20240110
  Serious: Yes (Other)
  Sender: FDA-Public Use
  Company Number: KR-BAYER-2019-135638

PATIENT
  Age: 58 Year
  Sex: Male

DRUGS (2)
  1. NEXAVAR [Suspect]
     Active Substance: SORAFENIB
     Indication: Hepatocellular carcinoma
     Dosage: 800 MG, QD
     Dates: start: 20161230
  2. STIVARGA [Suspect]
     Active Substance: REGORAFENIB
     Indication: Hepatocellular carcinoma
     Dosage: 120 MG, QD
     Dates: start: 20170720

REACTIONS (6)
  - Metastases to lung [Not Recovered/Not Resolved]
  - Protein induced by vitamin K absence or antagonist II increased [None]
  - Protein induced by vitamin K absence or antagonist II increased [None]
  - Drug ineffective [None]
  - Neoplasm malignant [None]
  - Neoplasm malignant [None]

NARRATIVE: CASE EVENT DATE: 20170228
